FAERS Safety Report 16232976 (Version 2)
Quarter: 2019Q2

REPORT INFORMATION
  Report Type: Spontaneous
  Country: US (occurrence: US)
  Receive Date: 20190424
  Receipt Date: 20190503
  Transmission Date: 20190711
  Serious: No
  Sender: FDA-Public Use
  Company Number: US-PFIZER INC-2019166597

PATIENT
  Sex: Female

DRUGS (1)
  1. GABAPENTIN AUROBINDO [Suspect]
     Active Substance: GABAPENTIN
     Indication: NECK PAIN
     Dosage: 300 MG, 1X/DAY (ONE AT NIGHT)

REACTIONS (10)
  - Intentional product use issue [Unknown]
  - Flatulence [Unknown]
  - Frequent bowel movements [Unknown]
  - Weight decreased [Unknown]
  - Abdominal pain upper [Not Recovered/Not Resolved]
  - Asthenia [Unknown]
  - Product use in unapproved indication [Unknown]
  - Abdominal pain lower [Not Recovered/Not Resolved]
  - Abdominal hernia [Unknown]
  - Dyschezia [Unknown]

NARRATIVE: CASE EVENT DATE: 20190207
